FAERS Safety Report 9783269 (Version 1)
Quarter: 2013Q4

REPORT INFORMATION
  Report Type: Spontaneous
  Country: IT (occurrence: IT)
  Receive Date: 20131226
  Receipt Date: 20131226
  Transmission Date: 20140711
  Serious: Yes (Other)
  Sender: FDA-Public Use
  Company Number: IT-TEVA-452045ISR

PATIENT
  Age: 41 Year
  Sex: Female

DRUGS (1)
  1. RISPERIDONE [Suspect]
     Indication: SCHIZOPHRENIA
     Dosage: DOSE: 2MG. FOR OVER 5 YEARS
     Route: 065

REACTIONS (2)
  - Mastitis [Recovered/Resolved]
  - Hyperprolactinaemia [Unknown]
